FAERS Safety Report 5699402-5 (Version None)
Quarter: 2008Q2

REPORT INFORMATION
  Report Type: 
  Country: None (occurrence: None)
  Receive Date: 20080407
  Receipt Date: 20080328
  Transmission Date: 20081010
  Serious: Yes (Other)
  Sender: FDA-Public Use
  Company Number: 08H-163-0314081-00

PATIENT
  Age: 44 Year
  Sex: Male
  Weight: 141 kg

DRUGS (1)
  1. HEPARIN SODIUM IN 5% DEXTROSE 100 UNITS/ML INJECTION, FLEX CONTAINER(H [Suspect]
     Indication: PULMONARY EMBOLISM
     Dosage: 2200 UNIT, 1 IN 1 HR, INTRAVENOUS DRIP
     Route: 041
     Dates: start: 20080111, end: 20080121

REACTIONS (2)
  - SERRATIA INFECTION [None]
  - THERAPEUTIC PRODUCT CONTAMINATION [None]
